FAERS Safety Report 9608454 (Version 2)
Quarter: 2013Q4

REPORT INFORMATION
  Report Type: Spontaneous
  Country: US (occurrence: US)
  Receive Date: 20131009
  Receipt Date: 20131113
  Transmission Date: 20140711
  Serious: Yes (Hospitalization)
  Sender: FDA-Public Use
  Company Number: US-BAYER-2013-121527

PATIENT
  Age: 49 Year
  Sex: Female
  Weight: 55.33 kg

DRUGS (3)
  1. MIRENA [Suspect]
     Indication: CONTRACEPTION
     Dosage: 20 MCG/24HR, CONT
     Route: 015
     Dates: start: 20130912, end: 20130918
  2. MIRENA [Suspect]
     Indication: MENORRHAGIA
  3. ENBREL [Concomitant]
     Indication: RHEUMATOID ARTHRITIS

REACTIONS (4)
  - Genital haemorrhage [Recovering/Resolving]
  - Abdominal pain lower [Recovering/Resolving]
  - Device expulsion [Recovering/Resolving]
  - Iron deficiency anaemia [Recovering/Resolving]
